FAERS Safety Report 18953301 (Version 1)
Quarter: 2021Q1

REPORT INFORMATION
  Report Type: Spontaneous
  Country: US (occurrence: US)
  Receive Date: 20210228
  Receipt Date: 20210228
  Transmission Date: 20210420
  Serious: No
  Sender: FDA-Public Use
  Company Number: None

PATIENT
  Age: 59 Year
  Sex: Female
  Weight: 77.85 kg

DRUGS (12)
  1. LYRICA [Concomitant]
     Active Substance: PREGABALIN
  2. HYDROCHLOROTHIAZIDE. [Concomitant]
     Active Substance: HYDROCHLOROTHIAZIDE
  3. ESTROGEN [Concomitant]
     Active Substance: ESTROGENS
  4. TIZANIDINE. [Concomitant]
     Active Substance: TIZANIDINE
  5. AMBIEN [Concomitant]
     Active Substance: ZOLPIDEM TARTRATE
  6. CYMBALTA [Concomitant]
     Active Substance: DULOXETINE HYDROCHLORIDE
  7. WELLBUTRIN [Concomitant]
     Active Substance: BUPROPION HYDROCHLORIDE
  8. PROGESTERONE. [Concomitant]
     Active Substance: PROGESTERONE
  9. OZEMPIC [Suspect]
     Active Substance: SEMAGLUTIDE
     Indication: TYPE 2 DIABETES MELLITUS
     Route: 058
  10. DILTIAZEM. [Concomitant]
     Active Substance: DILTIAZEM
  11. VALSARTAN. [Concomitant]
     Active Substance: VALSARTAN
  12. DOXEPINE [Concomitant]
     Active Substance: DOXEPIN

REACTIONS (4)
  - Decreased appetite [None]
  - Impaired work ability [None]
  - Malaise [None]
  - Nausea [None]

NARRATIVE: CASE EVENT DATE: 20210122
